FAERS Safety Report 22598999 (Version 1)
Quarter: 2023Q2

REPORT INFORMATION
  Report Type: Report from Study
  Country: US (occurrence: US)
  Receive Date: 20230614
  Receipt Date: 20230614
  Transmission Date: 20230721
  Serious: Yes (Death, Hospitalization)
  Sender: FDA-Public Use
  Company Number: US-002147023-NVSC2023US135195

PATIENT
  Age: 1 Year
  Sex: Female

DRUGS (1)
  1. TREPROSTINIL [Suspect]
     Active Substance: TREPROSTINIL
     Indication: Pulmonary arterial hypertension
     Dosage: 39 NG/KG/MIN, CONT
     Route: 058
     Dates: start: 202305

REACTIONS (4)
  - Death [Fatal]
  - Pneumonia [Unknown]
  - Dehydration [Unknown]
  - Heart rate decreased [Unknown]

NARRATIVE: CASE EVENT DATE: 20230612
